FAERS Safety Report 25320643 (Version 1)
Quarter: 2025Q2

REPORT INFORMATION
  Report Type: Spontaneous
  Country: US (occurrence: US)
  Receive Date: 20250515
  Receipt Date: 20250515
  Transmission Date: 20250716
  Serious: Yes (Other)
  Sender: MALLINCKRODT
  Company Number: US-MALLINCKRODT-MNK202502749

PATIENT
  Age: 4 Decade
  Sex: Female

DRUGS (1)
  1. CORTICOTROPIN [Suspect]
     Active Substance: CORTICOTROPIN
     Indication: Uveitis

REACTIONS (4)
  - Sarcoidosis [Unknown]
  - Sjogren^s syndrome [Unknown]
  - Autoimmune disorder [Unknown]
  - Injection site bruising [Recovered/Resolved]
